FAERS Safety Report 25833025 (Version 1)
Quarter: 2025Q3

REPORT INFORMATION
  Report Type: Spontaneous
  Country: EU (occurrence: EU)
  Receive Date: 20250922
  Receipt Date: 20250922
  Transmission Date: 20251021
  Serious: Yes (Other)
  Sender: NOVARTIS
  Company Number: EU-002147023-NVSC2025HR144738

PATIENT
  Age: 71 Year
  Sex: Male

DRUGS (8)
  1. IMATINIB [Suspect]
     Active Substance: IMATINIB
     Indication: Chronic myeloid leukaemia
     Route: 048
  2. IMATINIB [Suspect]
     Active Substance: IMATINIB
     Route: 065
  3. IMATINIB [Suspect]
     Active Substance: IMATINIB
     Route: 048
  4. IMATINIB [Suspect]
     Active Substance: IMATINIB
     Route: 065
  5. IMATINIB [Suspect]
     Active Substance: IMATINIB
     Route: 065
  6. ASCIMINIB [Suspect]
     Active Substance: ASCIMINIB
     Indication: Chronic myeloid leukaemia
     Route: 048
     Dates: start: 202408
  7. ASCIMINIB [Suspect]
     Active Substance: ASCIMINIB
     Route: 065
     Dates: start: 202501
  8. ASCIMINIB [Suspect]
     Active Substance: ASCIMINIB
     Route: 048

REACTIONS (7)
  - Neutropenia [Unknown]
  - Thrombocytopenia [Unknown]
  - Chills [Unknown]
  - Haematochezia [Unknown]
  - Pancytopenia [Recovering/Resolving]
  - Anaemia [Unknown]
  - Therapeutic response decreased [Unknown]
